FAERS Safety Report 20496971 (Version 3)
Quarter: 2022Q1

REPORT INFORMATION
  Report Type: Spontaneous
  Country: BR (occurrence: BR)
  Receive Date: 20220221
  Receipt Date: 20220308
  Transmission Date: 20220424
  Serious: Yes (Other)
  Sender: FDA-Public Use
  Company Number: BR-PFIZER INC-202200283643

PATIENT
  Sex: Male

DRUGS (2)
  1. CAVERJECT [Interacting]
     Active Substance: ALPROSTADIL
     Dosage: UNK
  2. TADALAFIL [Interacting]
     Active Substance: TADALAFIL
     Dosage: UNK

REACTIONS (5)
  - Prostatic operation [Unknown]
  - Prostatectomy [Unknown]
  - Mental disorder [Unknown]
  - Labelled drug-drug interaction medication error [Unknown]
  - Drug ineffective [Unknown]
